FAERS Safety Report 24911437 (Version 1)
Quarter: 2025Q1

REPORT INFORMATION
  Report Type: Spontaneous
  Country: CN (occurrence: CN)
  Receive Date: 20250131
  Receipt Date: 20250131
  Transmission Date: 20250409
  Serious: Yes (Hospitalization, Other)
  Sender: EMD SERONO INC
  Company Number: CN-Merck Healthcare KGaA-2025004330

PATIENT
  Age: 28 Year
  Sex: Female
  Weight: 56 kg

DRUGS (3)
  1. LUVERIS [Suspect]
     Active Substance: LUTROPIN ALFA
     Indication: Ovulation induction
     Dates: start: 20241224, end: 20241227
  2. OVIDREL [Suspect]
     Active Substance: CHORIOGONADOTROPIN ALFA
     Indication: Ovulation induction
     Dates: start: 20241228, end: 20241228
  3. UROFOLLITROPIN [Suspect]
     Active Substance: UROFOLLITROPIN
     Indication: Ovulation induction
     Dates: start: 20241218, end: 20241227

REACTIONS (1)
  - Ovarian hyperstimulation syndrome [Recovering/Resolving]

NARRATIVE: CASE EVENT DATE: 20250116
